FAERS Safety Report 6903046-4 (Version None)
Quarter: 2010Q3

REPORT INFORMATION
  Report Type: 
  Country: None (occurrence: None)
  Receive Date: 20100803
  Receipt Date: 20080618
  Transmission Date: 20110219
  Serious: No
  Sender: FDA-Public Use
  Company Number: US-PFIZER INC-2008036826

PATIENT
  Sex: Female
  Weight: 80.3 kg

DRUGS (6)
  1. LYRICA [Suspect]
     Indication: FIBROMYALGIA
     Route: 048
  2. PREDNISONE TAB [Suspect]
     Indication: FIBROMYALGIA
  3. ZESTRIL [Concomitant]
  4. LOPRESSOR [Concomitant]
  5. ZOLOFT [Concomitant]
  6. PLAQUENIL [Concomitant]

REACTIONS (3)
  - OEDEMA PERIPHERAL [None]
  - PAIN [None]
  - SOMNOLENCE [None]
